FAERS Safety Report 7794797-0 (Version None)
Quarter: 2011Q4

REPORT INFORMATION
  Report Type: 
  Country: None (occurrence: None)
  Receive Date: 20111004
  Receipt Date: 20111003
  Transmission Date: 20120403
  Serious: No
  Sender: FDA-Public Use
  Company Number: US-PFIZER INC-2011235932

PATIENT
  Sex: Female
  Weight: 53.968 kg

DRUGS (4)
  1. CHANTIX [Suspect]
     Dosage: 1 MG, 2X/DAY
     Route: 048
     Dates: start: 20110901
  2. ZITHROMAX [Concomitant]
     Indication: BRONCHITIS
     Dosage: UNK
     Dates: end: 20110901
  3. CHANTIX [Suspect]
     Indication: SMOKING CESSATION THERAPY
     Dosage: 0.5 MG, 1X/DAY
     Route: 048
     Dates: start: 20110914, end: 20110901
  4. SIMVASTATIN [Concomitant]
     Dosage: UNK

REACTIONS (4)
  - SOMNOLENCE [None]
  - DIZZINESS [None]
  - VISION BLURRED [None]
  - WEIGHT DECREASED [None]
